FAERS Safety Report 12993072 (Version 8)
Quarter: 2021Q4

REPORT INFORMATION
  Report Type: Other
  Country: JP (occurrence: None)
  Receive Date: 20161202
  Receipt Date: 20211213
  Transmission Date: 20220303
  Serious: Yes (Death, Other)
  Sender: FDA-Public Use
  Company Number: JP-ROCHE-1860605

PATIENT

DRUGS (8)
  1. BEVACIZUMAB [Suspect]
     Active Substance: BEVACIZUMAB
     Indication: Colorectal cancer metastatic
     Dosage: DAY 01 FOLFIRI  GROUP A
     Route: 042
  2. BEVACIZUMAB [Suspect]
     Active Substance: BEVACIZUMAB
     Dosage: DAY 01?XELIRI GROUP 2
     Route: 042
  3. CAPECITABINE [Suspect]
     Active Substance: CAPECITABINE
     Indication: Colorectal cancer metastatic
     Dosage: DAY 1-14, REPEATED EVERY 3 WEEKS
     Route: 048
  4. IRINOTECAN [Suspect]
     Active Substance: IRINOTECAN
     Indication: Colorectal cancer metastatic
     Dosage: ON DAY 1
     Route: 042
  5. IRINOTECAN [Suspect]
     Active Substance: IRINOTECAN
     Route: 042
  6. IRINOTECAN [Suspect]
     Active Substance: IRINOTECAN
     Route: 042
  7. LEUCOVORIN [Suspect]
     Active Substance: LEUCOVORIN
     Indication: Colorectal cancer metastatic
     Route: 042
  8. FLUOROURACIL [Suspect]
     Active Substance: FLUOROURACIL
     Indication: Colorectal cancer metastatic
     Dosage: FOLLOWED BY FLUOROURACIL 2400 MG/M2 GIVEN AS A 46-HOUR CONTINUOUS INFUSION
     Route: 042

REACTIONS (16)
  - White blood cell count decreased [Unknown]
  - Neutrophil count decreased [Unknown]
  - Anaemia [Unknown]
  - Palmar-plantar erythrodysaesthesia syndrome [Unknown]
  - Hypertension [Unknown]
  - Embolism [Unknown]
  - Gastrointestinal perforation [Unknown]
  - Haemorrhage [Unknown]
  - Neutropenia [Unknown]
  - Leukopenia [Unknown]
  - Diarrhoea [Unknown]
  - Febrile neutropenia [Unknown]
  - Malignant neoplasm progression [Fatal]
  - Therapeutic product effect decreased [Unknown]
  - Drug interaction [Unknown]
  - Mucosal inflammation [Unknown]
